FAERS Safety Report 8278774-1 (Version None)
Quarter: 2012Q2

REPORT INFORMATION
  Report Type: 
  Country: None (occurrence: None)
  Receive Date: 20120412
  Receipt Date: 20110307
  Transmission Date: 20120825
  Serious: No
  Sender: FDA-Public Use
  Company Number: US-ASTRAZENECA-2010SE16936

PATIENT
  Age: 50 Year
  Sex: Male
  Weight: 102.1 kg

DRUGS (9)
  1. NEXIUM [Suspect]
     Route: 048
  2. ZYPREXA [Concomitant]
     Indication: ANXIETY
  3. SEROQUEL [Suspect]
     Indication: ANXIETY
     Route: 048
     Dates: start: 20091201, end: 20100305
  4. SEROQUEL [Suspect]
     Route: 048
  5. SEROQUEL [Suspect]
     Indication: SLEEP DISORDER
     Route: 048
     Dates: start: 20091201, end: 20100305
  6. SEROQUEL [Suspect]
     Route: 048
  7. KLONOPIN [Suspect]
  8. SEROQUEL [Suspect]
     Indication: BIPOLAR DISORDER
     Route: 048
     Dates: start: 20091201, end: 20100305
  9. SEROQUEL [Suspect]
     Route: 048

REACTIONS (5)
  - ABDOMINAL DISCOMFORT [None]
  - FEELING ABNORMAL [None]
  - SOMNOLENCE [None]
  - AMNESIA [None]
  - DRUG DOSE OMISSION [None]
